FAERS Safety Report 18042722 (Version 1)
Quarter: 2020Q3

REPORT INFORMATION
  Report Type: Spontaneous
  Country: US (occurrence: US)
  Receive Date: 20200717
  Receipt Date: 20200717
  Transmission Date: 20201103
  Serious: Yes (Death)
  Sender: FDA-Public Use
  Company Number: None

PATIENT
  Age: 79 Week
  Sex: Female
  Weight: 81.9 kg

DRUGS (8)
  1. CONVALESCENT PLASMA [Concomitant]
     Active Substance: HUMAN PLASMA
     Dates: start: 20200713, end: 20200713
  2. AZITHROMYCIN 500 MG IV ONCE DAILY [Concomitant]
     Dates: start: 20200706, end: 20200711
  3. REMDESIVIR. [Suspect]
     Active Substance: REMDESIVIR
     Indication: COVID-19 PNEUMONIA
     Route: 042
     Dates: start: 20200708, end: 20200712
  4. ENOXAPARIN 40 MG SQ ONCE DAILY [Concomitant]
     Dates: start: 20200706, end: 20200715
  5. CEFTRIAXONE 1 GM IV ONCE DAILLY [Concomitant]
     Dates: start: 20200706, end: 20200710
  6. DEXAMETHASONE 6 MG IV ONCE DAILY [Concomitant]
     Dates: start: 20200706, end: 20200715
  7. LASIX 40 MG IV X 1 [Concomitant]
     Dates: start: 20200706, end: 20200706
  8. LASIX 20 MG IV BID 9A, 5P [Concomitant]
     Dates: start: 20200707, end: 20200712

REACTIONS (13)
  - Acidosis [None]
  - Pneumonia [None]
  - Encephalopathy [None]
  - Acute kidney injury [None]
  - Decreased appetite [None]
  - Septic shock [None]
  - Pyrexia [None]
  - Lethargy [None]
  - Cardiac arrest [None]
  - Malaise [None]
  - Respiratory failure [None]
  - Nausea [None]
  - Respiratory distress [None]

NARRATIVE: CASE EVENT DATE: 20200715
